FAERS Safety Report 12612077 (Version 2)
Quarter: 2016Q3

REPORT INFORMATION
  Report Type: Report from Study
  Country: US (occurrence: US)
  Receive Date: 20160801
  Receipt Date: 20160927
  Transmission Date: 20161109
  Serious: Yes (Other)
  Sender: FDA-Public Use
  Company Number: US-BAYER-2016-145357

PATIENT
  Age: 62 Year
  Sex: Male

DRUGS (2)
  1. STIVARGA [Suspect]
     Active Substance: REGORAFENIB
     Indication: HEPATIC CANCER
     Dosage: 160 MG, QD
     Route: 048
  2. STIVARGA [Suspect]
     Active Substance: REGORAFENIB
     Indication: HEPATIC CANCER
     Dosage: 160 MG, QD
     Route: 048
     Dates: end: 2016

REACTIONS (6)
  - Hyperkeratosis [None]
  - Blood pressure increased [None]
  - Headache [None]
  - Palmar-plantar erythrodysaesthesia syndrome [None]
  - Off label use [None]
  - Neuropathy peripheral [None]

NARRATIVE: CASE EVENT DATE: 201607
